FAERS Safety Report 5917916-7 (Version None)
Quarter: 2008Q4

REPORT INFORMATION
  Report Type: 
  Country: None (occurrence: None)
  Receive Date: 20081014
  Receipt Date: 20081002
  Transmission Date: 20090506
  Serious: Yes (Other)
  Sender: FDA-Public Use
  Company Number: IT-PFIZER INC-2008083043

PATIENT
  Age: 75 Year
  Sex: Female

DRUGS (1)
  1. MEDROL [Suspect]
     Indication: POLYMYALGIA RHEUMATICA
     Dosage: DAILY DOSE:16MG

REACTIONS (3)
  - ERYTHEMA [None]
  - HEADACHE [None]
  - HYPERTENSION [None]
